FAERS Safety Report 12252994 (Version 1)
Quarter: 2016Q2

REPORT INFORMATION
  Report Type: Spontaneous
  Country: US (occurrence: None)
  Receive Date: 20160408
  Receipt Date: 20160408
  Transmission Date: 20160815
  Serious: Yes (Other)
  Sender: FDA-Public Use
  Company Number: None

PATIENT
  Age: 60 Year
  Sex: Male
  Weight: 54.43 kg

DRUGS (1)
  1. SCLEROSOL [Suspect]
     Active Substance: TALC
     Indication: PLEURAL EFFUSION
     Route: 034
     Dates: start: 20160407, end: 20160407

REACTIONS (1)
  - Product quality issue [None]

NARRATIVE: CASE EVENT DATE: 20160407
